FAERS Safety Report 22028244 (Version 1)
Quarter: 2023Q1

REPORT INFORMATION
  Report Type: Spontaneous
  Country: US (occurrence: None)
  Receive Date: 20230223
  Receipt Date: 20230223
  Transmission Date: 20230418
  Serious: No
  Sender: FDA-Public Use
  Company Number: US-ROCHE-3038462

PATIENT
  Sex: Female

DRUGS (1)
  1. NUTROPIN AQ [Suspect]
     Active Substance: SOMATROPIN
     Indication: Growth hormone deficiency
     Dosage: DAILY : ONGOING, NUTROPIN AQ NUSPIN
     Route: 058
     Dates: start: 202006

REACTIONS (2)
  - Incorrect dose administered [Unknown]
  - No adverse event [Unknown]
